FAERS Safety Report 7807345-3 (Version None)
Quarter: 2011Q4

REPORT INFORMATION
  Report Type: 
  Country: None (occurrence: None)
  Receive Date: 20111011
  Receipt Date: 20111005
  Transmission Date: 20120403
  Serious: Yes (Life-Threatening)
  Sender: FDA-Public Use
  Company Number: FR-PFIZER INC-2011237696

PATIENT
  Sex: Female
  Weight: 1.2 kg

DRUGS (12)
  1. ETHAMBUTOL [Concomitant]
     Dosage: SECOND TRIMESTER
     Route: 064
     Dates: start: 20110701
  2. OXYCONTIN [Concomitant]
     Dosage: UNK
     Route: 064
  3. PREDNISONE [Concomitant]
     Dosage: 40 MG, DAILY
     Route: 064
  4. UMULINE [Concomitant]
     Dosage: THIRD TRIMESTER, PRE-DELIVERY
     Route: 064
  5. BETAMETHASONE [Concomitant]
     Dosage: THIRD TRIMESTER, PRE-DELIVERY
     Route: 064
     Dates: start: 20110914, end: 20110915
  6. DOXORUBICIN HCL [Suspect]
     Indication: BREAST CANCER METASTATIC
     Dosage: 3 CYCLES
     Route: 064
     Dates: start: 20110726, end: 20110827
  7. CYCLOPHOSPHAMIDE [Suspect]
     Indication: BREAST CANCER METASTATIC
     Dosage: 3 CYCLES
     Route: 064
     Dates: start: 20110726, end: 20110827
  8. OXYCODONE HCL [Concomitant]
     Dosage: UNK
     Route: 064
  9. NEURONTIN [Concomitant]
     Dosage: UNK
     Route: 064
  10. RIFAMPIN AND ISONIAZID [Suspect]
     Dosage: UNK
     Route: 064
     Dates: start: 20110701, end: 20110915
  11. FLAGYL [Concomitant]
     Dosage: FOR 7 DAYS IN THE SECOND TRIMESTER
     Route: 064
     Dates: start: 20110701
  12. INSULATARD NPH HUMAN [Concomitant]
     Dosage: UNK
     Route: 064

REACTIONS (3)
  - MATERNAL EXPOSURE DURING PREGNANCY [None]
  - ANAEMIA [None]
  - PREMATURE BABY [None]
